FAERS Safety Report 22172850 (Version 1)
Quarter: 2023Q2

REPORT INFORMATION
  Report Type: Spontaneous
  Country: US (occurrence: US)
  Receive Date: 20230404
  Receipt Date: 20230404
  Transmission Date: 20230722
  Serious: No
  Sender: FDA-Public Use
  Company Number: US-SA-SAC20230328000426

PATIENT
  Age: 14 Month
  Sex: Female

DRUGS (2)
  1. EFLORNITHINE HYDROCHLORIDE [Suspect]
     Active Substance: EFLORNITHINE HYDROCHLORIDE
     Dosage: UNK
     Route: 048
     Dates: start: 20220301
  2. FLUTICASONE PROPIONATE [Concomitant]
     Active Substance: FLUTICASONE PROPIONATE
     Dosage: 2 DF, BID

REACTIONS (2)
  - Joint dislocation [Not Recovered/Not Resolved]
  - Infection [Unknown]

NARRATIVE: CASE EVENT DATE: 20230223
